FAERS Safety Report 9198253 (Version 4)
Quarter: 2013Q2

REPORT INFORMATION
  Report Type: Spontaneous
  Country: US (occurrence: US)
  Receive Date: 20130329
  Receipt Date: 20130617
  Transmission Date: 20140414
  Serious: Yes (Hospitalization)
  Sender: FDA-Public Use
  Company Number: US-BIOGENIDEC-2013BI028422

PATIENT
  Age: 60 Year
  Sex: Female

DRUGS (4)
  1. AVONEX [Suspect]
     Indication: MULTIPLE SCLEROSIS
     Route: 030
     Dates: start: 20021211, end: 200304
  2. AVONEX [Suspect]
     Indication: MULTIPLE SCLEROSIS
     Route: 030
     Dates: end: 2007
  3. AVONEX [Suspect]
     Indication: MULTIPLE SCLEROSIS
     Route: 030
     Dates: start: 201211
  4. AVONEX [Suspect]
     Indication: MULTIPLE SCLEROSIS
     Route: 030
     Dates: start: 20121204

REACTIONS (12)
  - Adverse drug reaction [Recovered/Resolved]
  - Diverticulitis [Recovered/Resolved]
  - Abscess rupture [Recovered/Resolved]
  - White blood cell count increased [Recovered/Resolved]
  - Blood potassium decreased [Recovered/Resolved]
  - Abdominal pain lower [Recovered/Resolved]
  - Clostridium difficile colitis [Recovered/Resolved]
  - Multiple sclerosis relapse [Recovered/Resolved]
  - Arterial disorder [Recovered/Resolved]
  - Haematuria [Recovered/Resolved]
  - Nephrolithiasis [Recovered/Resolved]
  - Colonic fistula [Not Recovered/Not Resolved]
